FAERS Safety Report 11864165 (Version 1)
Quarter: 2015Q4

REPORT INFORMATION
  Report Type: Spontaneous
  Country: FI (occurrence: FI)
  Receive Date: 20151223
  Receipt Date: 20151223
  Transmission Date: 20160305
  Serious: Yes (Hospitalization)
  Sender: FDA-Public Use
  Company Number: FI-CONCORDIA PHARMACEUTICALS INC.-CO-UX-FI-2015-057

PATIENT
  Age: 49 Year
  Sex: Male

DRUGS (3)
  1. XATRAL [Suspect]
     Active Substance: ALFUZOSIN
     Indication: PROSTATITIS
     Route: 065
     Dates: start: 20151126, end: 20151129
  2. VOLTAREN [Concomitant]
     Active Substance: DICLOFENAC SODIUM
     Dates: start: 20151126, end: 20151129
  3. PANADOL [Concomitant]
     Active Substance: ACETAMINOPHEN
     Dates: start: 20151128, end: 20151129

REACTIONS (4)
  - Off label use [Recovered/Resolved]
  - Atrial fibrillation [Recovered/Resolved]
  - Asthenia [Recovered/Resolved]
  - Syncope [Recovered/Resolved]

NARRATIVE: CASE EVENT DATE: 20151126
